FAERS Safety Report 6603080-8 (Version None)
Quarter: 2010Q1

REPORT INFORMATION
  Report Type: 
  Country: None (occurrence: None)
  Receive Date: 20100226
  Receipt Date: 20100222
  Transmission Date: 20100710
  Serious: Yes (Death, Other)
  Sender: FDA-Public Use
  Company Number: PHEH2006US02048

PATIENT

DRUGS (1)
  1. ZOMETA [Suspect]
     Dosage: UNK

REACTIONS (16)
  - ABDOMINAL DISTENSION [None]
  - ARTHRALGIA [None]
  - BACK PAIN [None]
  - DEATH [None]
  - DENTURE WEARER [None]
  - FLATULENCE [None]
  - GROIN PAIN [None]
  - HERNIA [None]
  - INFECTION [None]
  - NASAL CONGESTION [None]
  - NERVOUSNESS [None]
  - OEDEMA PERIPHERAL [None]
  - OSTEITIS [None]
  - OSTEONECROSIS [None]
  - RHINORRHOEA [None]
  - TOOTH EXTRACTION [None]
